FAERS Safety Report 5581411-8 (Version None)
Quarter: 2008Q1

REPORT INFORMATION
  Report Type: 
  Country: None (occurrence: None)
  Receive Date: 20080104
  Receipt Date: 20071109
  Transmission Date: 20080703
  Serious: Yes (Other)
  Sender: FDA-Public Use
  Company Number: GB-BRISTOL-MYERS SQUIBB COMPANY-14029649

PATIENT
  Sex: Female

DRUGS (5)
  1. CYCLOPHOSPHAMIDE [Suspect]
     Indication: T-CELL LYMPHOMA
     Dates: start: 20071107
  2. DOXORUBICIN HCL [Suspect]
     Indication: T-CELL LYMPHOMA
     Dates: start: 20071107
  3. VINCRISTINE [Suspect]
     Indication: T-CELL LYMPHOMA
     Dates: start: 20071107
  4. RITUXIMAB [Suspect]
     Indication: T-CELL LYMPHOMA
     Dates: start: 20071107
  5. OXALIPLATIN [Suspect]
     Indication: T-CELL LYMPHOMA
     Dates: start: 20071107

REACTIONS (1)
  - CYSTITIS HAEMORRHAGIC [None]
